FAERS Safety Report 8814068 (Version 1)
Quarter: 2012Q4

REPORT INFORMATION
  Report Type: Spontaneous
  Country: US (occurrence: None)
  Receive Date: 20120926
  Receipt Date: 20120926
  Transmission Date: 20130627
  Serious: Yes (Other)
  Sender: FDA-Public Use
  Company Number: None

PATIENT
  Age: 60 Year
  Sex: Female
  Weight: 68.04 kg

DRUGS (1)
  1. CLOPIDOGREL [Suspect]
     Indication: TRIPLE VESSEL BYPASS GRAFT
     Dates: start: 20120517, end: 20120825

REACTIONS (3)
  - Contusion [None]
  - Contusion [None]
  - Product substitution issue [None]
